FAERS Safety Report 4445944-X (Version None)
Quarter: 2004Q3

REPORT INFORMATION
  Report Type: 
  Country: None (occurrence: None)
  Receive Date: 20040907
  Receipt Date: 20040907
  Transmission Date: 20050211
  Serious: Yes (Other)
  Sender: FDA-Public Use
  Company Number: None

PATIENT
  Sex: Male

DRUGS (17)
  1. ROXICODONE [Suspect]
  2. CLONAZEPAM [Suspect]
  3. REQUIP [Suspect]
     Indication: PARKINSON'S DISEASE
     Dosage: 4 MG PO TID
     Route: 048
     Dates: start: 20040820
  4. PROVIGIL [Suspect]
     Indication: NARCOLEPSY
     Dosage: SEE IMAGE
     Route: 048
     Dates: start: 20040820
  5. VIAGRA [Suspect]
  6. DULCOLAX [Suspect]
  7. PSEUDOEPHEDRINE HCL [Suspect]
  8. UNISOM (DIPHENHYDRAMINE) [Suspect]
  9. ASPIRIN [Concomitant]
  10. BUPROPION SUSTAINED RELEASE [Concomitant]
  11. DOCUSATE SODIUM [Concomitant]
  12. ESOMEPRAZOLE [Concomitant]
  13. LAMOTRIGINE [Concomitant]
  14. OLANZAPINE [Concomitant]
  15. RAMIPRIL [Concomitant]
  16. TRAMADOL HCL [Concomitant]
  17. MULTI-VITAMIN [Concomitant]

REACTIONS (4)
  - COMA [None]
  - MEDICATION ERROR [None]
  - REFUSAL OF TREATMENT BY PATIENT [None]
  - SEDATION [None]
